FAERS Safety Report 4305929-0 (Version None)
Quarter: 2004Q1

REPORT INFORMATION
  Report Type: 
  Country: None (occurrence: None)
  Receive Date: 20040225
  Receipt Date: 20040212
  Transmission Date: 20041129
  Serious: Yes (Disabling, Other)
  Sender: FDA-Public Use
  Company Number: 8005452

PATIENT
  Age: 56 Year
  Sex: Female

DRUGS (5)
  1. KEPPRA [Suspect]
     Indication: EPILEPSY
     Dosage: 500 MG PO
     Route: 048
     Dates: start: 20031118
  2. TRILEPTAL [Concomitant]
  3. BENDROFLUAZIDE [Concomitant]
  4. ATENOLOL [Concomitant]
  5. PROZAC [Concomitant]

REACTIONS (1)
  - PSORIASIS [None]
